FAERS Safety Report 10896320 (Version 1)
Quarter: 2015Q1

REPORT INFORMATION
  Report Type: Spontaneous
  Country: ES (occurrence: ES)
  Receive Date: 20150309
  Receipt Date: 20150309
  Transmission Date: 20150721
  Serious: Yes (Hospitalization)
  Sender: FDA-Public Use
  Company Number: ES-ACCORD-029060

PATIENT
  Age: 82 Year
  Sex: Female

DRUGS (9)
  1. PRAVASTATIN [Concomitant]
     Active Substance: PRAVASTATIN\PRAVASTATIN SODIUM
  2. SPIRONOLACTONE. [Concomitant]
     Active Substance: SPIRONOLACTONE
  3. ISOSORBIDE [Concomitant]
     Active Substance: ISOSORBIDE
  4. HYDROCHLOROTHIAZIDE. [Concomitant]
     Active Substance: HYDROCHLOROTHIAZIDE
  5. ACETYLSALICYLIC ACID [Concomitant]
     Active Substance: ASPIRIN
  6. TORASEMIDE [Concomitant]
     Active Substance: TORSEMIDE
  7. CANDESARTAN [Concomitant]
     Active Substance: CANDESARTAN
  8. SERTRALINE [Suspect]
     Active Substance: SERTRALINE HYDROCHLORIDE
     Indication: DEPRESSION
  9. ATENOLOL/ATENOLOL HYDROCHLORIDE [Concomitant]

REACTIONS (8)
  - General physical health deterioration [Unknown]
  - Delirium [Unknown]
  - Abnormal behaviour [Unknown]
  - Nausea [Unknown]
  - Hyponatraemia [Recovered/Resolved]
  - Inappropriate antidiuretic hormone secretion [Unknown]
  - Vomiting [Unknown]
  - Urinary tract infection [Unknown]
